FAERS Safety Report 7715711-X (Version None)
Quarter: 2011Q3

REPORT INFORMATION
  Report Type: 
  Country: None (occurrence: None)
  Receive Date: 20110829
  Receipt Date: 20110823
  Transmission Date: 20111222
  Serious: Yes (Other)
  Sender: FDA-Public Use
  Company Number: JP-PFIZER INC-2011194287

PATIENT

DRUGS (1)
  1. SUTENT [Suspect]

REACTIONS (1)
  - INTERSTITIAL LUNG DISEASE [None]
